FAERS Safety Report 13575051 (Version 2)
Quarter: 2017Q2

REPORT INFORMATION
  Report Type: Report from Study
  Country: US (occurrence: US)
  Receive Date: 20170523
  Receipt Date: 20170606
  Transmission Date: 20170830
  Serious: Yes (Other)
  Sender: FDA-Public Use
  Company Number: US-AMGEN-USASL2017076516

PATIENT
  Age: 61 Year
  Sex: Female

DRUGS (6)
  1. CELEBREX [Concomitant]
     Active Substance: CELECOXIB
     Dosage: UNK
  2. METHOTREXATE. [Concomitant]
     Active Substance: METHOTREXATE
  3. LEVOTHYROXINE. [Concomitant]
     Active Substance: LEVOTHYROXINE
  4. ENBREL [Suspect]
     Active Substance: ETANERCEPT
     Indication: RHEUMATOID ARTHRITIS
     Dosage: 50 MG, QWK
     Route: 065
     Dates: start: 2002, end: 20170131
  5. TOLTERODINE [Concomitant]
     Active Substance: TOLTERODINE
  6. ENBREL [Suspect]
     Active Substance: ETANERCEPT
     Dosage: 50 MG, QWK
     Route: 065
     Dates: start: 20170516

REACTIONS (8)
  - Renal disorder [Recovering/Resolving]
  - Renal impairment [Recovering/Resolving]
  - Liver disorder [Recovering/Resolving]
  - Pain [Unknown]
  - Rheumatoid arthritis [Unknown]
  - Hepatic function abnormal [Recovering/Resolving]
  - Increased tendency to bruise [Unknown]
  - Injection site bruising [Unknown]

NARRATIVE: CASE EVENT DATE: 2017
